FAERS Safety Report 20670599 (Version 1)
Quarter: 2022Q2

REPORT INFORMATION
  Report Type: Spontaneous
  Country: US (occurrence: None)
  Receive Date: 20220401
  Receipt Date: 20220401
  Transmission Date: 20220721
  Serious: No
  Sender: FDA-Public Use
  Company Number: None

PATIENT
  Sex: Female

DRUGS (1)
  1. TREMFYA [Suspect]
     Active Substance: GUSELKUMAB
     Indication: Psoriasis
     Dosage: INJECT 1 PEN UNDER THE SKIN AT WEEK 4, THEN EVERY 8WEEKS THEREAFTER.
     Route: 058
     Dates: start: 202203

REACTIONS (2)
  - Therapy non-responder [None]
  - Condition aggravated [None]
